FAERS Safety Report 20094664 (Version 3)
Quarter: 2022Q1

REPORT INFORMATION
  Report Type: Spontaneous
  Country: US (occurrence: US)
  Receive Date: 20211122
  Receipt Date: 20220107
  Transmission Date: 20220423
  Serious: No
  Sender: FDA-Public Use
  Company Number: US-STRONGBRIDGE BIOPHARMA-2021-STR-000377

PATIENT
  Age: 55 Year
  Sex: Male

DRUGS (1)
  1. KEVEYIS [Suspect]
     Active Substance: DICHLORPHENAMIDE
     Indication: Familial periodic paralysis
     Dosage: 50 MG, QD
     Route: 048
     Dates: start: 20211105

REACTIONS (7)
  - Asthenia [Unknown]
  - Paraesthesia [Not Recovered/Not Resolved]
  - Dysgeusia [Unknown]
  - Disease recurrence [Unknown]
  - Muscle spasms [Not Recovered/Not Resolved]
  - Condition aggravated [Not Recovered/Not Resolved]
  - Drug ineffective [Not Recovered/Not Resolved]

NARRATIVE: CASE EVENT DATE: 20211109
